FAERS Safety Report 5552897-X (Version None)
Quarter: 2007Q4

REPORT INFORMATION
  Report Type: 
  Country: None (occurrence: None)
  Receive Date: 20071211
  Receipt Date: 20071127
  Transmission Date: 20080405
  Serious: Yes (Hospitalization)
  Sender: FDA-Public Use
  Company Number: B0498755A

PATIENT
  Age: 17 Year
  Sex: Male
  Weight: 53.8873 kg

DRUGS (12)
  1. ALBUTEROL SULFATE [Suspect]
     Indication: ASTHMA
     Dosage: SEE DOSAGE TEXT / INHALED
     Route: 055
  2. ADRENALINE [Concomitant]
  3. IPRATROPIUM BROMIDE [Concomitant]
  4. PREDNISONE [Concomitant]
  5. MAGNESIUM SULFATE [Concomitant]
  6. SODIUM CHLORIDE [Concomitant]
  7. AMINOPHYLLINE [Concomitant]
  8. THEOPHYLLINE [Concomitant]
  9. DEXAMETHASONE TAB [Concomitant]
  10. HELIUM [Concomitant]
  11. OXYGEN [Concomitant]
  12. INSULIN [Concomitant]

REACTIONS (1)
  - METABOLIC ACIDOSIS [None]
